FAERS Safety Report 9953411 (Version 1)
Quarter: 2014Q1

REPORT INFORMATION
  Report Type: Spontaneous
  Country: US (occurrence: US)
  Receive Date: 20140304
  Receipt Date: 20140304
  Transmission Date: 20141002
  Serious: No
  Sender: FDA-Public Use
  Company Number: US-AMGEN-USASP2013075739

PATIENT
  Age: 83 Year
  Sex: Male
  Weight: 43.99 kg

DRUGS (8)
  1. ENBREL [Suspect]
     Indication: PRODUCT USED FOR UNKNOWN INDICATION
     Dosage: 50 MG/ML, UNK
     Route: 065
  2. CALCIUM GLUCONAT [Concomitant]
     Dosage: 500 MG, UNK
  3. ISOSORB MONO [Concomitant]
     Dosage: 10 MG, UNK
  4. HYDRALAZIN [Concomitant]
     Dosage: 25 MG, UNK
  5. LOPRESSOR [Concomitant]
     Dosage: 50 MG, UNK
  6. LEFLUNOMIDE [Concomitant]
     Dosage: 10 MG, UNK
  7. FOLIC ACID [Concomitant]
     Dosage: 400 MUG, UNK
  8. ASPIRIN [Concomitant]
     Dosage: 81 MG, ADULT

REACTIONS (1)
  - Drug effect decreased [Unknown]
